FAERS Safety Report 16734975 (Version 1)
Quarter: 2019Q3

REPORT INFORMATION
  Report Type: Spontaneous
  Country: US (occurrence: US)
  Receive Date: 20190820
  Receipt Date: 20190820
  Transmission Date: 20191005
  Serious: Yes (Hospitalization)
  Sender: FDA-Public Use
  Company Number: US-KEDRION-2019-000159

PATIENT

DRUGS (3)
  1. RHOGAM [Suspect]
     Active Substance: HUMAN RHO(D) IMMUNE GLOBULIN
     Indication: ABORTION
  2. RHOGAM [Suspect]
     Active Substance: HUMAN RHO(D) IMMUNE GLOBULIN
     Indication: HAEMORRHAGE
     Dosage: UNK
     Dates: start: 20190709, end: 20190709
  3. RHOGAM [Suspect]
     Active Substance: HUMAN RHO(D) IMMUNE GLOBULIN
     Indication: PROPHYLAXIS AGAINST RH ISOIMMUNISATION
     Dosage: UNK
     Route: 030
     Dates: start: 20190702, end: 20190702

REACTIONS (14)
  - Back pain [Recovered/Resolved with Sequelae]
  - Fatigue [Recovered/Resolved with Sequelae]
  - Pain [Recovered/Resolved with Sequelae]
  - Abortion infected [Recovered/Resolved]
  - Viral infection [Recovered/Resolved with Sequelae]
  - Haemorrhage [Recovered/Resolved with Sequelae]
  - Headache [Recovered/Resolved with Sequelae]
  - Abdominal pain lower [Recovered/Resolved with Sequelae]
  - Feeling abnormal [Recovered/Resolved with Sequelae]
  - Palpitations [Recovered/Resolved with Sequelae]
  - Adverse reaction [Recovered/Resolved with Sequelae]
  - Pyrexia [Recovered/Resolved with Sequelae]
  - Chills [Recovered/Resolved with Sequelae]
  - Anxiety [Recovered/Resolved with Sequelae]

NARRATIVE: CASE EVENT DATE: 20190706
